FAERS Safety Report 7284511-X (Version None)
Quarter: 2011Q1

REPORT INFORMATION
  Report Type: 
  Country: None (occurrence: None)
  Receive Date: 20110209
  Receipt Date: 20110104
  Transmission Date: 20110831
  Serious: Yes (Death, Other)
  Sender: FDA-Public Use
  Company Number: DE-GENZYME-CAMP-1001187

PATIENT

DRUGS (18)
  1. CYCLOPHOSPHAMIDE [Suspect]
     Dosage: 600 MG/M2, DAY 2, SUBSEQUENT CYCLES
     Route: 065
  2. CAMPATH [Suspect]
     Dosage: 10 MG, QD, DAY 2, CYCLE 1
     Route: 065
  3. CLEMASTINE FUMARATE [Concomitant]
     Indication: PREMEDICATION
     Dosage: 2 MG, UNK
     Route: 042
  4. FAMCICLOVIR [Concomitant]
     Indication: INFECTION PROPHYLAXIS
     Dosage: 250 MG, BID
  5. CAMPATH [Suspect]
     Indication: PERIPHERAL T-CELL LYMPHOMA UNSPECIFIED
     Dosage: 3 MG QD, DAY 1, CYCLE 1
     Route: 065
  6. DOXORUBICIN [Suspect]
     Dosage: 50 MG/M2, DAY 3, SUBSEQUENT CYCLES
     Route: 064
  7. CAMPATH [Suspect]
     Dosage: 30 MG, QD, DAY 3 AND 4, CYCLE 1
     Route: 065
  8. PREDNISONE [Concomitant]
     Dosage: 50 MG, UNK
     Route: 042
  9. CAMPATH [Suspect]
     Dosage: 30 MG, DAY 2 AND 3, SUBSEQUENT CYCLES
     Route: 065
  10. FLUDARA [Suspect]
     Indication: PERIPHERAL T-CELL LYMPHOMA UNSPECIFIED
     Dosage: 25 MG/M2, QD, DAYS 2-4 CYCLE 1
     Route: 065
  11. SEROTONIN ANTAGONISTS [Concomitant]
     Indication: PREMEDICATION
  12. CAMPATH [Suspect]
     Dosage: 10 MG, DAY 1, SUBSEQUENT CYCLES
     Route: 065
  13. DOXORUBICIN [Suspect]
     Indication: PERIPHERAL T-CELL LYMPHOMA UNSPECIFIED
     Dosage: 50 MG/M2, DAY 4, CYCLE 1
     Route: 065
  14. ACETAMINOPHEN [Concomitant]
     Indication: PREMEDICATION
     Dosage: 1 G, UNK
     Route: 048
  15. FLUDARA [Suspect]
     Dosage: 25 MG, QD, DAYS 1-3, SUBSEQUENT CYCLES
     Route: 065
  16. CYCLOPHOSPHAMIDE [Suspect]
     Indication: PERIPHERAL T-CELL LYMPHOMA UNSPECIFIED
     Dosage: 600 MG/M2, DAY 3 CYCLE 1
     Route: 065
  17. PREDNISONE [Concomitant]
     Indication: PREMEDICATION
     Dosage: 100 MG, UNK
     Route: 042
  18. TRIMETHOPRIM + SULFAMETHOXAZOLE [Concomitant]
     Indication: ANTIBIOTIC PROPHYLAXIS
     Dosage: 960 MG, UNK
     Route: 065

REACTIONS (2)
  - EPSTEIN-BARR VIRUS ASSOCIATED LYMPHOPROLIFERATIVE DISORDER [None]
  - TUBERCULOSIS [None]
